FAERS Safety Report 13896318 (Version 1)
Quarter: 2017Q3

REPORT INFORMATION
  Report Type: Spontaneous
  Country: US (occurrence: None)
  Receive Date: 20170814
  Receipt Date: 20170814
  Transmission Date: 20171127
  Serious: No
  Sender: FDA-Public Use
  Company Number: None

PATIENT
  Age: 81 Year
  Sex: Male

DRUGS (28)
  1. ALPRAZOLAM. [Concomitant]
     Active Substance: ALPRAZOLAM
  2. AMLODIPINE [Concomitant]
     Active Substance: AMLODIPINE BESYLATE
  3. FLOMAX [Concomitant]
     Active Substance: TAMSULOSIN HYDROCHLORIDE
  4. LOVASTATIN. [Concomitant]
     Active Substance: LOVASTATIN
  5. PROAIR HFA [Concomitant]
     Active Substance: ALBUTEROL SULFATE
  6. CHLORTHALID [Concomitant]
  7. VITAMIN D [Concomitant]
     Active Substance: CHOLECALCIFEROL
  8. XARELTO [Concomitant]
     Active Substance: RIVAROXABAN
  9. FLOMAX [Concomitant]
     Active Substance: TAMSULOSIN HYDROCHLORIDE
  10. LEVOTHYROXIN [Concomitant]
     Active Substance: LEVOTHYROXINE
  11. POT CL [Concomitant]
  12. CLONIDINE. [Concomitant]
     Active Substance: CLONIDINE
  13. CYANOCOBALAM [Concomitant]
  14. VITAMIN B12 [Concomitant]
     Active Substance: CYANOCOBALAMIN
  15. FINASTERIDE. [Concomitant]
     Active Substance: FINASTERIDE
  16. FOLIC ACID. [Concomitant]
     Active Substance: FOLIC ACID
  17. CLOTRIMAZOLE. [Concomitant]
     Active Substance: CLOTRIMAZOLE
  18. POTASSIUM [Concomitant]
     Active Substance: POTASSIUM
  19. ALBUTEROL. [Concomitant]
     Active Substance: ALBUTEROL
  20. MUCUSRELIEF [Concomitant]
  21. METOPROLOL. [Concomitant]
     Active Substance: METOPROLOL
  22. LOSARTAN. [Concomitant]
     Active Substance: LOSARTAN
  23. VOTRIENT [Suspect]
     Active Substance: PAZOPANIB HYDROCHLORIDE
     Indication: NEOPLASM MALIGNANT
     Route: 048
     Dates: start: 20140317
  24. PROBIOTIC [Concomitant]
     Active Substance: PROBIOTICS NOS
  25. FLOVENT [Concomitant]
     Active Substance: FLUTICASONE PROPIONATE
  26. FLUTICASONE. [Concomitant]
     Active Substance: FLUTICASONE
  27. NASONEX [Concomitant]
     Active Substance: MOMETASONE FUROATE
  28. COENZYME Q10 [Concomitant]
     Active Substance: UBIDECARENONE

REACTIONS (2)
  - Thrombosis [None]
  - Infection [None]

NARRATIVE: CASE EVENT DATE: 20170714
